FAERS Safety Report 9452737 (Version 1)
Quarter: 2013Q3

REPORT INFORMATION
  Report Type: Spontaneous
  Country: US (occurrence: None)
  Receive Date: 20130807
  Receipt Date: 20130807
  Transmission Date: 20140515
  Serious: Yes (Hospitalization)
  Sender: FDA-Public Use
  Company Number: FK201302984

PATIENT
  Age: 37 Year
  Sex: Female

DRUGS (2)
  1. FLUOROURACIL (MANUFACTURER UNKNOWN) (FLUOROURACIL) (FLUOROURACIL) [Suspect]
     Indication: APPENDIX CANCER
     Route: 042
  2. MITOMYCIN [Suspect]
     Indication: APPENDIX CANCER
     Route: 033

REACTIONS (1)
  - Gastric perforation [None]
